FAERS Safety Report 7854748-7 (Version None)
Quarter: 2011Q4

REPORT INFORMATION
  Report Type: 
  Country: None (occurrence: None)
  Receive Date: 20111026
  Receipt Date: 20110824
  Transmission Date: 20120403
  Serious: No
  Sender: FDA-Public Use
  Company Number: US-MUTUAL PHARMACEUTICAL COMPANY, INC.-CLCY20110117

PATIENT
  Sex: Female
  Weight: 59.02 kg

DRUGS (2)
  1. COLCRYS [Suspect]
     Route: 048
     Dates: start: 20110701, end: 20110801
  2. COLCRYS [Suspect]
     Indication: FAMILIAL MEDITERRANEAN FEVER
     Route: 048
     Dates: start: 20110323, end: 20110401

REACTIONS (6)
  - DRUG INEFFECTIVE [None]
  - DIZZINESS [None]
  - NAUSEA [None]
  - PRESYNCOPE [None]
  - HEADACHE [None]
  - DIARRHOEA [None]
